FAERS Safety Report 9426314 (Version 1)
Quarter: 2013Q3

REPORT INFORMATION
  Report Type: Spontaneous
  Country: US (occurrence: US)
  Receive Date: 20130730
  Receipt Date: 20130730
  Transmission Date: 20140515
  Serious: Yes (Other)
  Sender: FDA-Public Use
  Company Number: US-BRISTOL-MYERS SQUIBB COMPANY-19131747

PATIENT
  Age: 53 Year
  Sex: Male

DRUGS (3)
  1. BYDUREON [Suspect]
     Indication: TYPE 2 DIABETES MELLITUS
     Dosage: INTER ON UNK DATE ,RESUMED ON 10JUL13 AND STOPPED
     Route: 058
     Dates: start: 20130502, end: 201307
  2. METFORMIN [Concomitant]
     Route: 048
  3. HYDROCHLOROTHIAZIDE [Concomitant]

REACTIONS (3)
  - Lipase increased [Recovered/Resolved]
  - Gastroenteritis viral [Recovered/Resolved]
  - Fatigue [Recovered/Resolved]
